FAERS Safety Report 4864442-2 (Version None)
Quarter: 2005Q4

REPORT INFORMATION
  Report Type: 
  Country: None (occurrence: None)
  Receive Date: 20051222
  Receipt Date: 20051129
  Transmission Date: 20060501
  Serious: Yes (Death)
  Sender: FDA-Public Use
  Company Number: CA-AMGEN-US159456

PATIENT
  Sex: Male

DRUGS (7)
  1. NEULASTA [Suspect]
     Indication: CHEMOTHERAPY
     Route: 058
     Dates: start: 20050531, end: 20051108
  2. FLUOROURACIL [Concomitant]
     Dates: start: 20050531, end: 20050628
  3. LEUCOVORIN CALCIUM [Concomitant]
     Dates: start: 20050531, end: 20050628
  4. IRINOTECAN HCL [Concomitant]
     Dates: start: 20050531, end: 20050628
  5. FLUOROURACIL [Concomitant]
     Dates: start: 20051108, end: 20051110
  6. LEUCOVORIN CALCIUM [Concomitant]
     Dates: start: 20051108, end: 20051110
  7. OXALIPLATIN [Concomitant]
     Dates: start: 20051108, end: 20051110

REACTIONS (2)
  - COLORECTAL CANCER [None]
  - METASTASES TO LIVER [None]
